FAERS Safety Report 14970351 (Version 1)
Quarter: 2018Q2

REPORT INFORMATION
  Report Type: Spontaneous
  Country: US (occurrence: US)
  Receive Date: 20180604
  Receipt Date: 20180604
  Transmission Date: 20180711
  Serious: No
  Sender: FDA-Public Use
  Company Number: US-ALLERGAN-1770221US

PATIENT
  Age: 37 Year
  Sex: Female
  Weight: 69.39 kg

DRUGS (4)
  1. KEFLEX [Concomitant]
     Active Substance: CEPHALEXIN
     Indication: SURGERY
     Dosage: UNK
     Route: 048
     Dates: start: 2017
  2. KYBELLA [Suspect]
     Active Substance: DEOXYCHOLIC ACID
     Indication: EYE SWELLING
     Dosage: UNK, SINGLE
     Route: 058
     Dates: start: 20171205, end: 20171205
  3. KYBELLA [Suspect]
     Active Substance: DEOXYCHOLIC ACID
     Indication: FAT TISSUE INCREASED
  4. VICODIN [Concomitant]
     Active Substance: ACETAMINOPHEN\HYDROCODONE BITARTRATE
     Indication: PROCEDURAL PAIN
     Dosage: UNK
     Route: 048
     Dates: start: 2017

REACTIONS (4)
  - Headache [Not Recovered/Not Resolved]
  - Off label use [Unknown]
  - Vision blurred [Recovered/Resolved]
  - Drug ineffective [Unknown]

NARRATIVE: CASE EVENT DATE: 20171205
